FAERS Safety Report 4488920-3 (Version None)
Quarter: 2004Q3

REPORT INFORMATION
  Report Type: 
  Country: None (occurrence: None)
  Receive Date: 20040921
  Receipt Date: 20040413
  Transmission Date: 20050211
  Serious: Yes (Hospitalization)
  Sender: FDA-Public Use
  Company Number: 163-20785-04040307

PATIENT
  Age: 67 Year
  Sex: Male

DRUGS (9)
  1. THALOMID [Suspect]
     Indication: MULTIPLE MYELOMA
     Dosage: 150 MG, AT BEDTIME, ORAL
     Route: 048
     Dates: start: 20040217
  2. VELCADE [Suspect]
     Indication: MULTIPLE MYELOMA
     Dosage: 1.3 MG/M2, D1, 4, 8, 11 EVERY 21 DAYS, INTRAVENOUS
     Route: 042
     Dates: start: 20040126, end: 20040402
  3. ACYCLOVIR (ACICLOVIR) (UNKNOWN) [Concomitant]
  4. TUSSIONEX (UNKNOWN) [Concomitant]
  5. LISINOPRIL [Concomitant]
  6. PAROXETINE (PAROXETINE) (UNKNOWN) [Concomitant]
  7. BACTRIM [Concomitant]
  8. TOPAMAX (TOPIRAMATE) (UNKNOWN) [Concomitant]
  9. AMITRIPTYLINE (AMITRIPTYLINE) (UNKNOWN) [Concomitant]

REACTIONS (2)
  - CONSTIPATION [None]
  - PNEUMONIA [None]
